FAERS Safety Report 8483995-9 (Version None)
Quarter: 2012Q3

REPORT INFORMATION
  Report Type: 
  Country: None (occurrence: None)
  Receive Date: 20120703
  Receipt Date: 20120629
  Transmission Date: 20120928
  Serious: No
  Sender: FDA-Public Use
  Company Number: US-PFIZER INC-2012157037

PATIENT
  Sex: Female
  Weight: 129 kg

DRUGS (12)
  1. CYMBALTA [Concomitant]
     Indication: DEPRESSION
     Dosage: 90 MG, UNK
  2. ENABLEX [Concomitant]
     Indication: HYPERTONIC BLADDER
     Dosage: 15 MG, 1X/DAY
     Route: 048
  3. LEVOTHYROXINE [Concomitant]
     Indication: HYPOTHYROIDISM
     Dosage: 0.175 MG, UNK
  4. IBUPROFEN [Concomitant]
     Dosage: UNK
  5. KEPPRA [Concomitant]
     Indication: CONVULSION
     Dosage: 500 MG, 2X/DAY
     Route: 048
  6. PROMETHAZINE [Concomitant]
     Indication: NAUSEA
     Dosage: 50 MG (25MG TWO TABLETS), 3X/DAY
     Route: 048
  7. SODIUM CHLORIDE [Concomitant]
     Indication: BLOOD SODIUM DECREASED
     Dosage: 1 MG, 3X/DAY
  8. LYRICA [Suspect]
     Indication: FIBROMYALGIA
     Dosage: 100 MG, 3X/DAY
     Route: 048
     Dates: end: 20120401
  9. PANTOPRAZOLE [Concomitant]
     Indication: GASTROOESOPHAGEAL REFLUX DISEASE
     Dosage: 40 MG, UNK
  10. PRIMIDONE [Concomitant]
     Indication: CONVULSION
     Dosage: 50 MG, UNK
  11. LASIX [Concomitant]
     Indication: HYPERTENSION
     Dosage: 40 MG, 2X/DAY
  12. LASIX [Concomitant]
     Indication: CARDIAC FAILURE CONGESTIVE

REACTIONS (1)
  - PAIN [None]
